FAERS Safety Report 11744388 (Version 2)
Quarter: 2015Q4

REPORT INFORMATION
  Report Type: Spontaneous
  Country: GB (occurrence: GB)
  Receive Date: 20151116
  Receipt Date: 20151215
  Transmission Date: 20160304
  Serious: Yes (Other)
  Sender: FDA-Public Use
  Company Number: GB-PFIZER INC-2015387433

PATIENT
  Age: 43 Year
  Sex: Female
  Weight: 73 kg

DRUGS (17)
  1. CELECOXIB. [Concomitant]
     Active Substance: CELECOXIB
     Dosage: INCREASING TO ^TWO T^
  2. COLECALCIFEROL [Concomitant]
     Active Substance: CHOLECALCIFEROL
     Dosage: 1 DF, 1X/DAY
     Dates: start: 20151027
  3. CELECOXIB. [Concomitant]
     Active Substance: CELECOXIB
     Dosage: ONE TO BE TAKEN TWICE A DAY
     Dates: start: 20151019
  4. CALCIPOTRIOL [Concomitant]
     Active Substance: CALCIPOTRIENE
     Dosage: 1 DF, 1X/DAY
     Dates: start: 20151021
  5. TRIMOVATE [Concomitant]
     Active Substance: CLOBETASONE BUTYRATE\NYSTATIN\OXYTETRACYCLINE CALCIUM
     Dosage: APPLY ONCE DAILY AS REQUIRED
     Dates: start: 20151021
  6. DERMOL SHAMPOO [Concomitant]
     Dosage: USE AS DIRECTED.
     Dates: start: 20151021
  7. DESOGESTREL [Concomitant]
     Active Substance: DESOGESTREL
     Dosage: 1 DF, DAILY
     Dates: start: 20151021
  8. SULFASALAZINE. [Suspect]
     Active Substance: SULFASALAZINE
     Indication: PSORIATIC ARTHROPATHY
     Dosage: UNK
     Route: 048
     Dates: start: 2015, end: 20150713
  9. BETAMETHASONE VALERATE. [Concomitant]
     Active Substance: BETAMETHASONE VALERATE
     Dosage: 1 DF, 2X/DAY
     Dates: start: 20151021
  10. CELEBREX [Concomitant]
     Active Substance: CELECOXIB
     Dosage: 1 TWICE A DAY, INCREASE TO TWO IF NECESSARY
     Dates: start: 20150320, end: 20151019
  11. SUMATRIPTAN. [Concomitant]
     Active Substance: SUMATRIPTAN
     Dosage: ONE SPRAY AS DIRECTED
     Dates: start: 20150508
  12. SERTRALINE [Concomitant]
     Active Substance: SERTRALINE HYDROCHLORIDE
     Dosage: 2 DF, 1X/DAY
     Dates: start: 20151021
  13. COCOIS [Concomitant]
     Dosage: APPLY AS DIRECTED
     Dates: start: 20151021
  14. LACTULOSE. [Concomitant]
     Active Substance: LACTULOSE
     Dosage: 15 ML, 2X/DAY
     Dates: start: 20140617
  15. LEFLUNOMIDE. [Concomitant]
     Active Substance: LEFLUNOMIDE
     Dosage: 1 DF, DAILY (1 DAILY FOR 2 WEEKS )
     Dates: start: 20151027
  16. LEFLUNOMIDE. [Concomitant]
     Active Substance: LEFLUNOMIDE
     Dosage: INCREASE TO ^20 M^
  17. OMEPRAZOLE. [Concomitant]
     Active Substance: OMEPRAZOLE
     Dosage: 1 DF, 1X/DAY
     Dates: start: 20150508

REACTIONS (3)
  - Skin exfoliation [Recovered/Resolved]
  - Product use issue [Recovered/Resolved]
  - Dermatitis bullous [Recovered/Resolved]

NARRATIVE: CASE EVENT DATE: 20150401
